FAERS Safety Report 12264445 (Version 1)
Quarter: 2016Q2

REPORT INFORMATION
  Report Type: Spontaneous
  Country: US (occurrence: US)
  Receive Date: 20160413
  Receipt Date: 20160413
  Transmission Date: 20160815
  Serious: No
  Sender: FDA-Public Use
  Company Number: US-JNJFOC-20160310730

PATIENT
  Age: 88 Year
  Sex: Male
  Weight: 81.65 kg

DRUGS (3)
  1. ALL OTHER NON-THERAPEUTIC PRODUCTS [Suspect]
     Active Substance: UNSPECIFIED INGREDIENT
     Indication: DANDRUFF
  2. MENS ROGAINE EXTRA STRENGTH [Suspect]
     Active Substance: MINOXIDIL
     Indication: ALOPECIA
     Dosage: HALF CAPFUL
     Route: 061
     Dates: start: 201602
  3. MENS ROGAINE EXTRA STRENGTH [Suspect]
     Active Substance: MINOXIDIL
     Route: 061

REACTIONS (6)
  - Contraindicated drug administered [Recovered/Resolved]
  - Hair texture abnormal [Recovered/Resolved]
  - Drug administered at inappropriate site [Recovered/Resolved]
  - Product formulation issue [Recovered/Resolved]
  - Alopecia [Recovered/Resolved]
  - Drug ineffective [Unknown]
